FAERS Safety Report 4346971-3 (Version None)
Quarter: 2004Q1

REPORT INFORMATION
  Report Type: 
  Country: None (occurrence: None)
  Receive Date: 20040329
  Receipt Date: 20031218
  Transmission Date: 20041129
  Serious: No
  Sender: FDA-Public Use
  Company Number: USA031255051

PATIENT
  Sex: Female

DRUGS (10)
  1. STRATTERA [Suspect]
     Indication: ATTENTION DEFICIT/HYPERACTIVITY DISORDER
     Dosage: 80 MG/ IN THE EVENING
     Dates: start: 20031208
  2. EVISTA [Concomitant]
  3. TRIAMTERENE [Concomitant]
  4. COZAAR [Concomitant]
  5. BEXTRA [Concomitant]
  6. LIPITOR [Concomitant]
  7. POTASSIUM [Concomitant]
  8. CALCIUM [Concomitant]
  9. GLUCOSAMINE [Concomitant]
  10. SUDAFED 12 HOUR [Concomitant]

REACTIONS (2)
  - FATIGUE [None]
  - SOMNOLENCE [None]
